FAERS Safety Report 6396684-1 (Version None)
Quarter: 2009Q4

REPORT INFORMATION
  Report Type: 
  Country: None (occurrence: None)
  Receive Date: 20091012
  Receipt Date: 20090930
  Transmission Date: 20100525
  Serious: Yes (Hospitalization, Other)
  Sender: FDA-Public Use
  Company Number: GB-AMGEN-QUU366960

PATIENT
  Sex: Female

DRUGS (4)
  1. NEULASTA [Suspect]
     Indication: CHEMOTHERAPY
     Route: 065
     Dates: start: 20090603
  2. ADRIAMYCIN PFS [Concomitant]
     Dates: start: 20090602
  3. CYCLOPHOSPHAMIDE [Concomitant]
     Dates: start: 20090602
  4. TAXOL [Concomitant]
     Dates: start: 20090602

REACTIONS (1)
  - NEUTROPENIA [None]
